FAERS Safety Report 8064558-6 (Version None)
Quarter: 2012Q1

REPORT INFORMATION
  Report Type: 
  Country: None (occurrence: None)
  Receive Date: 20120123
  Receipt Date: 20120112
  Transmission Date: 20120608
  Serious: Yes (Other)
  Sender: FDA-Public Use
  Company Number: US-ASTRAZENECA-2011SE28058

PATIENT
  Age: 46 Year
  Sex: Female

DRUGS (9)
  1. KLONOPIN [Concomitant]
  2. SEROQUEL XR [Suspect]
     Indication: BIPOLAR DISORDER
     Route: 048
  3. AMBIEN [Concomitant]
  4. LITHIUM [Concomitant]
  5. PRESTIA [Concomitant]
  6. XANAX [Concomitant]
  7. SEROQUEL XR [Suspect]
     Route: 048
  8. TRAZODONE HCL [Concomitant]
  9. ZOCOR [Concomitant]

REACTIONS (12)
  - DRUG DOSE OMISSION [None]
  - ASTHENIA [None]
  - VOMITING [None]
  - MOOD SWINGS [None]
  - AMNESIA [None]
  - SUICIDAL IDEATION [None]
  - MANIA [None]
  - COMPULSIVE SHOPPING [None]
  - MALAISE [None]
  - DISTURBANCE IN ATTENTION [None]
  - MEMORY IMPAIRMENT [None]
  - ACTIVITIES OF DAILY LIVING IMPAIRED [None]
